FAERS Safety Report 7215481-8 (Version None)
Quarter: 2011Q1

REPORT INFORMATION
  Report Type: 
  Country: None (occurrence: None)
  Receive Date: 20110107
  Receipt Date: 20101230
  Transmission Date: 20110831
  Serious: Yes (Hospitalization)
  Sender: FDA-Public Use
  Company Number: A0881824A

PATIENT
  Sex: Female
  Weight: 70 kg

DRUGS (2)
  1. CLINDOXYL [Suspect]
     Indication: ACNE
     Route: 061
     Dates: start: 20100903, end: 20100904
  2. NEUTRAL SOAP [Concomitant]
     Dates: start: 20080901

REACTIONS (7)
  - FACE OEDEMA [None]
  - NECK PAIN [None]
  - HEADACHE [None]
  - ERYTHEMA [None]
  - ABDOMINAL PAIN UPPER [None]
  - PRURITUS [None]
  - PRODUCT QUALITY ISSUE [None]
